FAERS Safety Report 9975545 (Version 2)
Quarter: 2014Q1

REPORT INFORMATION
  Report Type: Spontaneous
  Country: DE (occurrence: DE)
  Receive Date: 20140306
  Receipt Date: 20140306
  Transmission Date: 20141002
  Serious: Yes (Hospitalization)
  Sender: FDA-Public Use
  Company Number: PHHY2014DE014233

PATIENT
  Sex: Female

DRUGS (4)
  1. LEPONEX [Suspect]
     Indication: SCHIZOPHRENIA
     Dosage: 150 MG, QD
     Route: 048
     Dates: start: 20140119
  2. SEROQUEL [Concomitant]
     Dosage: 500 MG, QD
  3. VALPROAT [Concomitant]
     Dosage: UNK
  4. ERGENYL CHRONO [Concomitant]
     Dosage: 1300 MG, DAILY
     Route: 048

REACTIONS (5)
  - Infection [Unknown]
  - C-reactive protein increased [Recovered/Resolved]
  - Pyrexia [Recovered/Resolved]
  - Blood creatine phosphokinase increased [Recovered/Resolved]
  - Lymphocyte count decreased [Unknown]
